FAERS Safety Report 4522546-8 (Version None)
Quarter: 2004Q4

REPORT INFORMATION
  Report Type: 
  Country: None (occurrence: None)
  Receive Date: 20041207
  Receipt Date: 20041124
  Transmission Date: 20050328
  Serious: Yes (Other)
  Sender: FDA-Public Use
  Company Number: JP_041105248

PATIENT
  Age: 56 Year
  Sex: Male
  Weight: 60 kg

DRUGS (5)
  1. ZYPREXA [Suspect]
     Indication: SCHIZOPHRENIA
     Dosage: 20 MG DAY
     Route: 048
     Dates: start: 20040817, end: 20040818
  2. RISPERDAL [Concomitant]
  3. HALOPERIDOL [Concomitant]
  4. DIAZEPAM [Concomitant]
  5. ARTANE [Concomitant]

REACTIONS (5)
  - ABULIA [None]
  - AUTISM [None]
  - CONDITION AGGRAVATED [None]
  - DEMENTIA [None]
  - ELECTROENCEPHALOGRAM ABNORMAL [None]
